FAERS Safety Report 7943666-1 (Version None)
Quarter: 2011Q4

REPORT INFORMATION
  Report Type: 
  Country: None (occurrence: None)
  Receive Date: 20111128
  Receipt Date: 20111117
  Transmission Date: 20120403
  Serious: Yes (Hospitalization, Other)
  Sender: FDA-Public Use
  Company Number: US-ASTRAZENECA-2010SE16572

PATIENT
  Age: 81 Year
  Sex: Female
  Weight: 73.9 kg

DRUGS (6)
  1. SEROQUEL [Suspect]
     Indication: SLEEP DISORDER
     Route: 048
     Dates: start: 20050101
  2. SYNTHROID [Concomitant]
     Indication: HYPOTHYROIDISM
  3. VITAMIN D [Concomitant]
     Dosage: 2000 UNITS DAILY
  4. FEMARA [Concomitant]
     Indication: NEOPLASM MALIGNANT
  5. LASIX [Concomitant]
     Indication: OEDEMA PERIPHERAL
  6. FOLIC ACID [Concomitant]

REACTIONS (9)
  - FALL [None]
  - MUSCLE SPASMS [None]
  - PELVIC FRACTURE [None]
  - NEOPLASM MALIGNANT [None]
  - HERNIA [None]
  - CATARACT [None]
  - BACK PAIN [None]
  - INSOMNIA [None]
  - DRUG DOSE OMISSION [None]
